FAERS Safety Report 5389072-8 (Version None)
Quarter: 2007Q3

REPORT INFORMATION
  Report Type: 
  Country: None (occurrence: None)
  Receive Date: 20070717
  Receipt Date: 20070706
  Transmission Date: 20080115
  Serious: Yes (Other)
  Sender: FDA-Public Use
  Company Number: US-JNJFOC-20070701796

PATIENT
  Sex: Female
  Weight: 54.43 kg

DRUGS (5)
  1. FENTANYL TRANSDERMAL SYSTEM [Suspect]
     Indication: PARAESTHESIA
     Route: 062
  2. FENTANYL TRANSDERMAL SYSTEM [Suspect]
     Indication: BURNING SENSATION
     Route: 062
  3. CLONAZEPAM [Concomitant]
     Indication: NERVOUSNESS
     Dosage: TAKEN EVERY EVENING
     Route: 048
  4. CYMBALTA [Concomitant]
     Indication: SLEEP DISORDER THERAPY
     Route: 048
  5. CYMBALTA [Concomitant]
     Indication: ANTIDEPRESSANT THERAPY
     Route: 048

REACTIONS (3)
  - BONE SCAN ABNORMAL [None]
  - DRUG WITHDRAWAL SYNDROME [None]
  - PHARMACEUTICAL PRODUCT COMPLAINT [None]
